FAERS Safety Report 9807740 (Version 1)
Quarter: 2014Q1

REPORT INFORMATION
  Report Type: Spontaneous
  Country: FR (occurrence: FR)
  Receive Date: 20140110
  Receipt Date: 20140110
  Transmission Date: 20141002
  Serious: Yes (Hospitalization)
  Sender: FDA-Public Use
  Company Number: FR-ASTRAZENECA-2014SE00980

PATIENT
  Age: 29438 Day
  Sex: Male

DRUGS (8)
  1. CRESTOR [Suspect]
     Route: 048
  2. PREVISCAN [Suspect]
     Dosage: 10 MG OR 20 MG EACH OTHER DAY
     Route: 048
     Dates: start: 20130115
  3. BISOCE [Suspect]
     Route: 065
  4. CORDARONE [Concomitant]
  5. GLUCOR [Concomitant]
  6. FUROSEMIDE [Concomitant]
  7. OGAST [Concomitant]
  8. HAVLANE [Concomitant]

REACTIONS (1)
  - Ecchymosis [Recovered/Resolved]
